FAERS Safety Report 8131388-6 (Version None)
Quarter: 2012Q1

REPORT INFORMATION
  Report Type: 
  Country: None (occurrence: None)
  Receive Date: 20120213
  Receipt Date: 20120203
  Transmission Date: 20120608
  Serious: Yes (Hospitalization)
  Sender: FDA-Public Use
  Company Number: US-GENZYME-MOZO-1000597

PATIENT
  Sex: Male
  Weight: 61.9 kg

DRUGS (13)
  1. DECITABINE [Concomitant]
     Dosage: 20 MG/M2, QD
     Route: 042
     Dates: start: 20111024, end: 20111102
  2. LANTUS [Concomitant]
     Indication: PRODUCT USED FOR UNKNOWN INDICATION
     Route: 065
  3. LIDOCAINE HCL VISCOUS [Concomitant]
     Indication: PRODUCT USED FOR UNKNOWN INDICATION
     Route: 065
  4. METFORMIN HCL [Concomitant]
     Indication: PRODUCT USED FOR UNKNOWN INDICATION
     Route: 065
  5. MOZOBIL [Suspect]
     Indication: HAEMATOPOIETIC STEM CELL MOBILISATION
     Dosage: 21.2 MG, QD
     Route: 042
     Dates: start: 20111024, end: 20111028
  6. MOZOBIL [Suspect]
     Indication: ACUTE MYELOID LEUKAEMIA
  7. FLUCONAZOLE [Concomitant]
     Indication: PRODUCT USED FOR UNKNOWN INDICATION
     Route: 065
  8. FOLIC ACID [Concomitant]
     Indication: PRODUCT USED FOR UNKNOWN INDICATION
     Route: 065
  9. DECITABINE [Concomitant]
     Indication: ACUTE MYELOID LEUKAEMIA
     Dosage: 20 MG/M2, QD
     Route: 042
     Dates: start: 20110913
  10. CIPROFLOXACIN [Concomitant]
     Indication: PRODUCT USED FOR UNKNOWN INDICATION
     Dosage: UNK
     Route: 065
  11. LORAZEPAM [Concomitant]
     Indication: PRODUCT USED FOR UNKNOWN INDICATION
     Route: 065
  12. BIOTENE [Concomitant]
     Indication: PRODUCT USED FOR UNKNOWN INDICATION
     Route: 065
  13. MULTI-VITAMIN [Concomitant]
     Indication: PRODUCT USED FOR UNKNOWN INDICATION

REACTIONS (2)
  - FEBRILE NEUTROPENIA [None]
  - TACHYCARDIA [None]
